FAERS Safety Report 6034485-4 (Version None)
Quarter: 2009Q1

REPORT INFORMATION
  Report Type: 
  Country: None (occurrence: None)
  Receive Date: 20090108
  Receipt Date: 20081229
  Transmission Date: 20090719
  Serious: Yes (Hospitalization)
  Sender: FDA-Public Use
  Company Number: 2009SP000058

PATIENT
  Age: 69 Year
  Sex: Male
  Weight: 68.7 kg

DRUGS (2)
  1. TEMOZOLOMIDE [Suspect]
     Indication: DRUG USE FOR UNKNOWN INDICATION
  2. RAD001 [Suspect]
     Indication: METASTATIC MALIGNANT MELANOMA
     Dosage: PO
     Route: 048
     Dates: start: 20080708

REACTIONS (3)
  - DRUG TOXICITY [None]
  - HAEMOPTYSIS [None]
  - PNEUMONIA [None]
